FAERS Safety Report 13841281 (Version 1)
Quarter: 2017Q3

REPORT INFORMATION
  Report Type: Spontaneous
  Country: FR (occurrence: FR)
  Receive Date: 20170807
  Receipt Date: 20170807
  Transmission Date: 20171127
  Serious: Yes (Death, Other)
  Sender: FDA-Public Use
  Company Number: FR-009507513-1708FRA002972

PATIENT
  Age: 29 Year
  Sex: Female

DRUGS (5)
  1. AKINETON [Concomitant]
     Active Substance: BIPERIDEN HYDROCHLORIDE
     Dosage: UNK
     Dates: start: 2009
  2. LOXAPAC (LOXAPINE SUCCINATE) [Concomitant]
     Active Substance: LOXAPINE SUCCINATE
     Dosage: UNK
     Dates: start: 2009
  3. POLYETHYLENE GLYCOL [Concomitant]
     Active Substance: POLYETHYLENE GLYCOLS
     Dosage: UNK
     Dates: start: 2009
  4. NEXPLANON [Suspect]
     Active Substance: ETONOGESTREL
     Dosage: UNK, LEFT ARM
     Route: 059
     Dates: start: 20160530
  5. LEPONEX [Concomitant]
     Active Substance: CLOZAPINE
     Dosage: UNK
     Dates: start: 2009

REACTIONS (2)
  - Salivary hypersecretion [Unknown]
  - Pulmonary embolism [Fatal]

NARRATIVE: CASE EVENT DATE: 20170517
